FAERS Safety Report 18901291 (Version 1)
Quarter: 2021Q1

REPORT INFORMATION
  Report Type: Spontaneous
  Country: CN (occurrence: CN)
  Receive Date: 20210216
  Receipt Date: 20210216
  Transmission Date: 20210420
  Serious: Yes (Other)
  Sender: FDA-Public Use
  Company Number: CN-ASTRAZENECA-2021A051219

PATIENT
  Age: 26832 Day
  Sex: Female
  Weight: 56 kg

DRUGS (3)
  1. BUDESONIDE. [Suspect]
     Active Substance: BUDESONIDE
     Indication: CHRONIC OBSTRUCTIVE PULMONARY DISEASE
     Route: 055
     Dates: start: 20210127, end: 20210127
  2. CIMETIDINE [Concomitant]
     Active Substance: CIMETIDINE
     Indication: CHRONIC GASTRITIS
     Route: 041
     Dates: start: 20210127, end: 20210127
  3. DIPROPHYLLINE [Concomitant]
     Active Substance: DYPHYLLINE
     Indication: CHRONIC OBSTRUCTIVE PULMONARY DISEASE
     Route: 041
     Dates: start: 20210127, end: 20210127

REACTIONS (4)
  - Hyperhidrosis [Recovering/Resolving]
  - Dyspnoea [Recovering/Resolving]
  - Cold sweat [Recovering/Resolving]
  - Cyanosis [Recovering/Resolving]

NARRATIVE: CASE EVENT DATE: 20210127
